FAERS Safety Report 8798087 (Version 1)
Quarter: 2012Q4

REPORT INFORMATION
  Report Type: 
  Country: US (occurrence: US)
  Receive Date: 20120920
  Receipt Date: 20120920
  Transmission Date: 20130627
  Serious: Yes (Other)
  Sender: FDA-Public Use
  Company Number: US-US-EMD SERONO, INC.-7162049

PATIENT
  Age: 5 Year
  Sex: Male
  Weight: 20 kg

DRUGS (2)
  1. SAIZEN [(SOMATROPIN (RDNA ORIGIN) FOR INJECTION)] [Suspect]
     Indication: GROWTH HORMONE DEFICIENCY
     Route: 058
     Dates: start: 20100419
  2. SYNTHROID [Concomitant]
     Indication: CONGENITAL HYPOTHYROIDISM
     Route: 048
     Dates: start: 20070119

REACTIONS (2)
  - Diabetes insipidus [Recovering/Resolving]
  - Hyperthyroidism [Unknown]
